FAERS Safety Report 8605328-7 (Version None)
Quarter: 2012Q3

REPORT INFORMATION
  Report Type: 
  Country: None (occurrence: None)
  Receive Date: 20120820
  Receipt Date: 20120815
  Transmission Date: 20120928
  Serious: Yes (Death, Other)
  Sender: FDA-Public Use
  Company Number: PH-ASTRAZENECA-2012SE56686

PATIENT
  Age: 24711 Day
  Sex: Female

DRUGS (4)
  1. BRILINTA [Suspect]
     Indication: CORONARY ARTERY DISEASE
     Route: 048
     Dates: start: 20111213, end: 20120801
  2. METFORMIN HCL [Concomitant]
     Indication: TYPE 2 DIABETES MELLITUS
     Route: 048
     Dates: start: 20101205
  3. LOSARTAN POTASSIUM [Concomitant]
     Indication: HYPERTENSION
     Route: 048
     Dates: start: 20101205
  4. ASPIRIN [Concomitant]
     Route: 048
     Dates: start: 20101205

REACTIONS (3)
  - SEPTIC SHOCK [None]
  - FEBRILE NEUTROPENIA [None]
  - SEPSIS [None]
